FAERS Safety Report 5792336-7 (Version None)
Quarter: 2008Q2

REPORT INFORMATION
  Report Type: 
  Country: None (occurrence: None)
  Receive Date: 20080626
  Receipt Date: 20080623
  Transmission Date: 20081010
  Serious: Yes (Life-Threatening, Hospitalization)
  Sender: FDA-Public Use
  Company Number: US-ELI_LILLY_AND_COMPANY-US200806002207

PATIENT
  Sex: Female
  Weight: 132.43 kg

DRUGS (15)
  1. BYETTA [Suspect]
     Indication: DIABETES MELLITUS
     Dosage: 5 UG, UNK
     Route: 058
     Dates: start: 20080423, end: 20080428
  2. AVINZA [Concomitant]
     Dosage: 60 MG, 2/D
  3. CALCIUM [Concomitant]
  4. CYMBALTA [Concomitant]
     Dosage: 60 MG, DAILY (1/D)
  5. PRILOSEC [Concomitant]
     Dosage: 20 MG, DAILY (1/D)
  6. SIMVASTATIN [Concomitant]
     Dosage: 80 MG, DAILY (1/D)
  7. XANAX [Concomitant]
     Dosage: 2 MG, 2/D
  8. PROVENTIL-HFA [Concomitant]
     Dosage: UNK, EVERY 6 HRS
  9. LANTUS [Concomitant]
     Dosage: 85 U, EACH EVENING
  10. NOVOLOG [Concomitant]
     Dosage: 35 U, 3/D
  11. NITROGLYCERIN [Concomitant]
     Dosage: UNK, AS NEEDED
  12. LASIX [Concomitant]
     Dosage: 40 MG, DAILY (1/D)
  13. VITAMIN D [Concomitant]
     Dosage: 50000 U, MONTHLY (1/M)
  14. ZYPREXA [Concomitant]
     Dosage: 5 MG, EACH EVENING
  15. MULTI-VITAMIN [Concomitant]

REACTIONS (3)
  - ACUTE MYOCARDIAL INFARCTION [None]
  - MULTI-ORGAN FAILURE [None]
  - SEPTIC SHOCK [None]
